FAERS Safety Report 7812073-4 (Version None)
Quarter: 2011Q4

REPORT INFORMATION
  Report Type: 
  Country: None (occurrence: None)
  Receive Date: 20111013
  Receipt Date: 20111004
  Transmission Date: 20120403
  Serious: Yes (Other)
  Sender: FDA-Public Use
  Company Number: CN-BAXTER-2011BH031635

PATIENT

DRUGS (9)
  1. PHENYTOIN [Concomitant]
     Indication: PROPHYLAXIS
     Route: 065
  2. CYCLOSPORINE [Concomitant]
     Indication: PROPHYLAXIS AGAINST GRAFT VERSUS HOST DISEASE
     Route: 042
  3. CYCLOPHOSPHAMIDE [Suspect]
     Indication: BONE MARROW CONDITIONING REGIMEN
     Route: 042
  4. NEUPOGEN [Concomitant]
     Indication: PRODUCT USED FOR UNKNOWN INDICATION
     Route: 042
  5. BUSULFAN [Suspect]
     Indication: BONE MARROW CONDITIONING REGIMEN
     Route: 042
  6. METHOTREXATE [Concomitant]
     Indication: PRODUCT USED FOR UNKNOWN INDICATION
     Route: 065
  7. ANTI-THYMOCYTE GLOBULIN RABBIT NOS [Concomitant]
     Indication: PRODUCT USED FOR UNKNOWN INDICATION
     Route: 065
  8. PROSTAGLANDIN E1 [Concomitant]
     Indication: PROPHYLAXIS
     Route: 065
  9. MYCOPHENOLATE MOFETIL [Concomitant]
     Indication: PRODUCT USED FOR UNKNOWN INDICATION
     Route: 065

REACTIONS (1)
  - VENOOCCLUSIVE DISEASE [None]
